FAERS Safety Report 9965346 (Version 1)
Quarter: 2014Q1

REPORT INFORMATION
  Report Type: Report from Study
  Country: US (occurrence: US)
  Receive Date: 20140305
  Receipt Date: 20140305
  Transmission Date: 20141002
  Serious: No
  Sender: FDA-Public Use
  Company Number: US-ABBVIE-13P-163-1124388-00

PATIENT
  Age: 35 Year
  Sex: Male

DRUGS (6)
  1. HUMIRA [Suspect]
     Indication: CROHN^S DISEASE
     Dates: start: 20130626, end: 20130710
  2. HUMIRA [Suspect]
     Dates: start: 20130710
  3. SULFASALAZINE [Concomitant]
     Indication: CROHN^S DISEASE
  4. PEPCID AC [Concomitant]
     Indication: CROHN^S DISEASE
  5. PEPCID AC [Concomitant]
     Indication: FLATULENCE
  6. MULTIVITAMIN [Concomitant]
     Indication: PRODUCT USED FOR UNKNOWN INDICATION

REACTIONS (5)
  - Flatulence [Unknown]
  - Injection site reaction [Not Recovered/Not Resolved]
  - Injection site pain [Not Recovered/Not Resolved]
  - Injection site erythema [Not Recovered/Not Resolved]
  - Incorrect dose administered [Unknown]
